FAERS Safety Report 9906876 (Version 3)
Quarter: 2015Q3

REPORT INFORMATION
  Report Type: Spontaneous
  Country: US (occurrence: US)
  Receive Date: 20140218
  Receipt Date: 20150811
  Transmission Date: 20151125
  Serious: No
  Sender: FDA-Public Use
  Company Number: US-GILEAD-2012-0052245

PATIENT
  Age: 61 Year
  Sex: Female

DRUGS (8)
  1. SPIRONOLACTONE. [Concomitant]
     Active Substance: SPIRONOLACTONE
  2. LORAZEPAM. [Concomitant]
     Active Substance: LORAZEPAM
  3. TADALAFIL [Concomitant]
     Active Substance: TADALAFIL
  4. NPH INSULIN [Concomitant]
     Active Substance: INSULIN BEEF
  5. LETAIRIS [Suspect]
     Active Substance: AMBRISENTAN
     Indication: PULMONARY HYPERTENSION
     Dosage: 5 MG, QD
     Route: 048
     Dates: start: 20120216, end: 20120223
  6. FUROSEMIDE. [Concomitant]
     Active Substance: FUROSEMIDE
  7. NADOLOL. [Concomitant]
     Active Substance: NADOLOL
  8. OMEPRAZOLE. [Concomitant]
     Active Substance: OMEPRAZOLE

REACTIONS (2)
  - Respiratory disorder [Unknown]
  - Dyspnoea [Unknown]

NARRATIVE: CASE EVENT DATE: 20120222
